FAERS Safety Report 7689848-8 (Version None)
Quarter: 2011Q3

REPORT INFORMATION
  Report Type: 
  Country: None (occurrence: None)
  Receive Date: 20110818
  Receipt Date: 20110811
  Transmission Date: 20111222
  Serious: Yes (Hospitalization)
  Sender: FDA-Public Use
  Company Number: US-BIOGENIDEC-2010BI041941

PATIENT
  Sex: Female

DRUGS (4)
  1. XANAX [Concomitant]
     Indication: NEUROPATHY PERIPHERAL
  2. AVONEX [Suspect]
     Indication: MULTIPLE SCLEROSIS
     Route: 030
     Dates: start: 20071101
  3. ATIVAN [Concomitant]
     Indication: NEUROPATHY PERIPHERAL
  4. UNKNOWN MEDICATION [Concomitant]

REACTIONS (11)
  - BALANCE DISORDER [None]
  - INVESTIGATION [None]
  - URINARY INCONTINENCE [None]
  - MENTAL DISORDER [None]
  - LOSS OF CONTROL OF LEGS [None]
  - MEMORY IMPAIRMENT [None]
  - PAIN [None]
  - FATIGUE [None]
  - PARAESTHESIA [None]
  - DEPRESSION [None]
  - HYPERTENSION [None]
